FAERS Safety Report 6465033-2 (Version None)
Quarter: 2009Q4

REPORT INFORMATION
  Report Type: 
  Country: None (occurrence: None)
  Receive Date: 20091123
  Receipt Date: 20091109
  Transmission Date: 20100525
  Serious: Yes (Other)
  Sender: FDA-Public Use
  Company Number: 2007RR-08961

PATIENT
  Sex: Female

DRUGS (3)
  1. ACETAMINOPHEN [Suspect]
     Dosage: 1G, UNK, TRANSPLACENTAL
     Route: 064
  2. ARAVA [Suspect]
     Indication: RHEUMATOID ARTHRITIS
     Dosage: 20 MG, UNK, TRANSPLACENTAL
     Route: 064
     Dates: start: 20040415, end: 20050701
  3. PREDNISOLONE [Suspect]
     Indication: RHEUMATOID ARTHRITIS
     Dosage: 5 MG,UNK, TRANSPLACENTAL
     Route: 064
     Dates: start: 20040304

REACTIONS (3)
  - CARDIAC MURMUR [None]
  - CARDIAC VALVE DISEASE [None]
  - PREMATURE BABY [None]
